FAERS Safety Report 12236748 (Version 1)
Quarter: 2016Q2

REPORT INFORMATION
  Report Type: Spontaneous
  Country: ES (occurrence: ES)
  Receive Date: 20160405
  Receipt Date: 20160405
  Transmission Date: 20160815
  Serious: Yes (Life-Threatening, Hospitalization)
  Sender: FDA-Public Use
  Company Number: ES-OCTA-GAM08916ES

PATIENT
  Age: 79 Year
  Sex: Male

DRUGS (1)
  1. OCTAGAMOCTA [Suspect]
     Active Substance: HUMAN IMMUNOGLOBULIN G
     Indication: SECONDARY IMMUNODEFICIENCY
     Route: 042
     Dates: start: 20160215, end: 20160315

REACTIONS (4)
  - Acute pulmonary oedema [Recovered/Resolved]
  - Atrial fibrillation [Unknown]
  - Cardiac failure congestive [Recovered/Resolved]
  - Dyspnoea [Unknown]

NARRATIVE: CASE EVENT DATE: 20160215
